FAERS Safety Report 5350864-2 (Version None)
Quarter: 2007Q2

REPORT INFORMATION
  Report Type: 
  Country: None (occurrence: None)
  Receive Date: 20070608
  Receipt Date: 20070605
  Transmission Date: 20071010
  Serious: Yes (Other)
  Sender: FDA-Public Use
  Company Number: B0461447A

PATIENT
  Age: 44 Year
  Sex: Male
  Weight: 50 kg

DRUGS (14)
  1. KIVEXA [Suspect]
     Indication: HIV INFECTION
     Dosage: 1TAB PER DAY
     Route: 048
     Dates: start: 20061122
  2. EPIVIR [Suspect]
     Indication: HIV INFECTION
     Route: 065
     Dates: start: 20070301, end: 20070410
  3. ZIAGEN [Suspect]
     Indication: HIV INFECTION
     Route: 065
     Dates: start: 20070301, end: 20070410
  4. KALETRA [Concomitant]
     Indication: HIV INFECTION
     Dosage: 400MG TWICE PER DAY
     Route: 048
     Dates: start: 20061122
  5. ZELITREX [Concomitant]
     Dosage: 500MG TWICE PER DAY
     Route: 048
  6. BACTRIM [Concomitant]
     Route: 065
  7. ENTECAVIR [Concomitant]
     Dosage: .5MG PER DAY
     Route: 048
  8. NEXIUM [Concomitant]
     Route: 065
  9. LOXEN [Concomitant]
     Dosage: 50MG TWICE PER DAY
     Route: 048
  10. TOPALGIC ( FRANCE ) [Concomitant]
     Route: 065
  11. LEXOMIL [Concomitant]
     Route: 065
  12. VFEND [Concomitant]
     Indication: ASPERGILLOSIS
     Route: 050
     Dates: start: 20070125
  13. VANCOMYCIN [Concomitant]
     Route: 065
  14. TAZOCILLINE [Concomitant]
     Route: 065

REACTIONS (3)
  - MELANODERMIA [None]
  - RENAL FAILURE [None]
  - SEPSIS [None]
